FAERS Safety Report 6660666-2 (Version None)
Quarter: 2010Q1

REPORT INFORMATION
  Report Type: 
  Country: None (occurrence: None)
  Receive Date: 20100326
  Receipt Date: 20100309
  Transmission Date: 20100710
  Serious: Yes (Hospitalization)
  Sender: FDA-Public Use
  Company Number: B0640997A

PATIENT
  Age: 15 Year
  Sex: Male

DRUGS (9)
  1. MERCAPTOPURINE [Suspect]
     Indication: ACUTE LYMPHOCYTIC LEUKAEMIA
  2. VINCRISTINE [Suspect]
  3. PREDNISONE [Suspect]
  4. DAUNORUBICIN (FORMULATION UNKNOWN) (DAUNORUBICIN) [Suspect]
  5. ASPARAGINE (FORMULATION UNKNOWN) (ASPARAGINE) [Suspect]
  6. CYCLOPHOSPHAMIDE [Suspect]
  7. CYTARABINE [Suspect]
  8. METHOTREXATE [Suspect]
     Dosage: INTRATHECAL
     Route: 037
  9. HYDROCORTISONE [Suspect]

REACTIONS (12)
  - AURA [None]
  - BRAIN SCAN ABNORMAL [None]
  - CEREBROSCLEROSIS [None]
  - COMPLEX PARTIAL SEIZURES [None]
  - DIZZINESS [None]
  - GLIOSIS [None]
  - HYPOMETABOLISM [None]
  - MENTAL IMPAIRMENT [None]
  - NAUSEA [None]
  - TEMPORAL LOBE EPILEPSY [None]
  - THERAPEUTIC AGENT TOXICITY [None]
  - VERTIGO [None]
